FAERS Safety Report 20688676 (Version 1)
Quarter: 2022Q2

REPORT INFORMATION
  Report Type: Spontaneous
  Country: IT (occurrence: IT)
  Receive Date: 20220408
  Receipt Date: 20220408
  Transmission Date: 20220720
  Serious: Yes (Hospitalization, Other)
  Sender: FDA-Public Use
  Company Number: IT-JNJFOC-20220401282

PATIENT
  Sex: Male

DRUGS (1)
  1. SPRAVATO [Suspect]
     Active Substance: ESKETAMINE
     Indication: Depression

REACTIONS (6)
  - Legionella infection [Unknown]
  - Septic shock [Unknown]
  - Pneumonia [Unknown]
  - Pyrexia [Unknown]
  - Cardiac disorder [Unknown]
  - Mobility decreased [Unknown]

NARRATIVE: CASE EVENT DATE: 20210101
